FAERS Safety Report 6793404-3 (Version None)
Quarter: 2010Q2

REPORT INFORMATION
  Report Type: 
  Country: None (occurrence: None)
  Receive Date: 20100624
  Receipt Date: 20100426
  Transmission Date: 20101027
  Serious: Yes (Other)
  Sender: FDA-Public Use
  Company Number: US-MYLANLABS-2010S1002157

PATIENT
  Age: 38 Year
  Sex: Female
  Weight: 98.88 kg

DRUGS (15)
  1. CLOZAPINE [Suspect]
     Indication: MENTAL IMPAIRMENT
     Dates: start: 20100204, end: 20100209
  2. ACETAMINOPHEN [Concomitant]
     Dates: start: 20100118, end: 20100209
  3. BUPROPION HYDROCHLORIDE [Concomitant]
     Dates: start: 20100119, end: 20100209
  4. METHOCARBAMOL [Concomitant]
     Dates: start: 20100118, end: 20100208
  5. DESVENLAFAXINE [Concomitant]
     Dates: start: 20100118, end: 20100209
  6. LEVOTHYROXINE [Concomitant]
     Dates: start: 20100118, end: 20100209
  7. LORAZEPAM [Concomitant]
     Dates: start: 20100118, end: 20100209
  8. METHYLPHENIDATE [Concomitant]
     Dates: start: 20100119, end: 20100209
  9. OMEPRAZOLE [Concomitant]
     Dates: start: 20100118, end: 20100209
  10. ONDANSETRON [Concomitant]
     Dates: start: 20100128, end: 20100209
  11. POTASSIUM CHLORIDE [Concomitant]
     Dates: start: 20100120, end: 20100120
  12. SEROQUEL [Concomitant]
     Dates: start: 20100118, end: 20100209
  13. TRAZODONE HYDROCHLORIDE [Concomitant]
     Dates: start: 20100118, end: 20100209
  14. NALTREXONE HYDROCHLORIDE [Concomitant]
     Dates: start: 20100118, end: 20100209
  15. CARISOPRODOL [Concomitant]
     Dates: start: 20100201, end: 20100209

REACTIONS (2)
  - GRANULOCYTOPENIA [None]
  - LEUKOPENIA [None]
